FAERS Safety Report 8407627-0 (Version None)
Quarter: 2012Q2

REPORT INFORMATION
  Report Type: 
  Country: None (occurrence: None)
  Receive Date: 20120604
  Receipt Date: 20120530
  Transmission Date: 20120825
  Serious: Yes (Life-Threatening)
  Sender: FDA-Public Use
  Company Number: FR-ASTRAZENECA-2010SE32966

PATIENT
  Age: 17605 Day
  Sex: Male

DRUGS (15)
  1. ATARAX [Suspect]
     Indication: ANAESTHETIC PREMEDICATION
     Route: 048
     Dates: start: 20100617, end: 20100617
  2. CYMBALTA [Concomitant]
  3. NAROPIN [Suspect]
     Indication: NEUROMUSCULAR BLOCKADE
     Route: 042
     Dates: start: 20100617, end: 20100617
  4. OXYCONTIN [Concomitant]
  5. GAVISCON [Concomitant]
  6. ACETAMINOPHEN [Concomitant]
  7. OLMESARTAN MEDOXOMIL [Concomitant]
  8. LYRICA [Suspect]
     Indication: ANAESTHETIC PREMEDICATION
     Route: 048
     Dates: start: 20100617, end: 20100617
  9. DESLORATADINE [Concomitant]
  10. CLONAZEPAM [Concomitant]
  11. INNOVAIRE [Concomitant]
  12. DIPRIVAN [Suspect]
     Indication: INDUCTION OF ANAESTHESIA
     Dosage: THREE INJECTION AS: 200 MG, 100 MG AND THEN 200 MG
     Route: 042
     Dates: start: 20100617, end: 20100617
  13. SUFENTANIL CITRATE [Suspect]
     Indication: GAIT DISTURBANCE
     Dosage: TWO INJECTION AS: 40 MCG AND THEN 10 MCG
     Route: 042
     Dates: start: 20100617, end: 20100617
  14. ROCURONIUM BROMIDE [Suspect]
     Indication: INDUCTION OF ANAESTHESIA
     Route: 042
     Dates: start: 20100617, end: 20100617
  15. NEXIUM [Concomitant]

REACTIONS (1)
  - ANAPHYLACTIC SHOCK [None]
